FAERS Safety Report 9423675 (Version 2)
Quarter: 2013Q3

REPORT INFORMATION
  Report Type: Report from Study
  Country: US (occurrence: US)
  Receive Date: 20130727
  Receipt Date: 20130802
  Transmission Date: 20140515
  Serious: Yes (Death)
  Sender: FDA-Public Use
  Company Number: US-ROCHE-1254030

PATIENT
  Age: 71 Year
  Sex: Male
  Weight: 90.4 kg

DRUGS (2)
  1. RITUXAN [Suspect]
     Indication: APLASIA PURE RED CELL
     Route: 065
  2. RITUXAN [Suspect]
     Indication: CHRONIC MYELOID LEUKAEMIA

REACTIONS (1)
  - Multi-organ failure [Fatal]
